FAERS Safety Report 17726571 (Version 2)
Quarter: 2020Q2

REPORT INFORMATION
  Report Type: Report from Study
  Country: None (occurrence: US)
  Receive Date: 20200430
  Receipt Date: 20200524
  Transmission Date: 20200714
  Serious: Yes (Other)
  Sender: FDA-Public Use
  Company Number: US-ABBVIE-20K-163-3301048-00

PATIENT
  Age: 68 Year
  Sex: Female
  Weight: 77.18 kg

DRUGS (1)
  1. HUMIRA [Suspect]
     Active Substance: ADALIMUMAB
     Indication: RHEUMATOID ARTHRITIS
     Route: 058

REACTIONS (4)
  - Swelling [Unknown]
  - Ligament sprain [Recovered/Resolved]
  - Multiple fractures [Recovered/Resolved]
  - Fall [Unknown]

NARRATIVE: CASE EVENT DATE: 202001
